FAERS Safety Report 8380921-8 (Version None)
Quarter: 2012Q2

REPORT INFORMATION
  Report Type: 
  Country: None (occurrence: None)
  Receive Date: 20120523
  Receipt Date: 20120521
  Transmission Date: 20120825
  Serious: Yes (Other)
  Sender: FDA-Public Use
  Company Number: US-PFIZER INC-2012075104

PATIENT
  Sex: Female

DRUGS (2)
  1. LYRICA [Suspect]
     Indication: MYALGIA
     Dosage: UNK
     Dates: start: 20120101, end: 20120101
  2. LYRICA [Suspect]
     Indication: TENDONITIS
     Dosage: 75 MG, UNK
     Dates: end: 20120101

REACTIONS (5)
  - MUSCULAR WEAKNESS [None]
  - GRIP STRENGTH DECREASED [None]
  - JOINT RANGE OF MOTION DECREASED [None]
  - TREMOR [None]
  - DYSKINESIA [None]
